FAERS Safety Report 8463622-7 (Version None)
Quarter: 2012Q2

REPORT INFORMATION
  Report Type: 
  Country: None (occurrence: None)
  Receive Date: 20120625
  Receipt Date: 20120618
  Transmission Date: 20120825
  Serious: Yes (Other)
  Sender: FDA-Public Use
  Company Number: US-PFIZER INC-2012115648

PATIENT
  Sex: Female
  Weight: 52.608 kg

DRUGS (8)
  1. CALCIUM [Concomitant]
     Dosage: UNK
  2. POTASSIUM [Concomitant]
     Dosage: UNK
  3. SYNTHROID [Concomitant]
     Dosage: UNK
  4. SUTENT [Suspect]
     Indication: GASTROINTESTINAL STROMAL TUMOUR
     Dosage: 25 MG, 1X/DAY
     Dates: start: 20120413, end: 20120530
  5. AMLODIPINE [Concomitant]
     Dosage: 10 MG, UNK
  6. NORVASC [Concomitant]
     Dosage: UNK
     Dates: start: 20110101
  7. ZANTAC [Concomitant]
     Dosage: UNK
     Dates: start: 20000101
  8. RANITIDINE [Concomitant]
     Dosage: UNK

REACTIONS (10)
  - URINARY TRACT INFECTION [None]
  - STRESS [None]
  - WEIGHT DECREASED [None]
  - STOMATITIS [None]
  - DISEASE PROGRESSION [None]
  - AMNESIA [None]
  - GASTROINTESTINAL STROMAL TUMOUR [None]
  - DRY MOUTH [None]
  - FATIGUE [None]
  - BLISTER [None]
